FAERS Safety Report 18579639 (Version 1)
Quarter: 2020Q4

REPORT INFORMATION
  Report Type: Spontaneous
  Country: US (occurrence: US)
  Receive Date: 20201204
  Receipt Date: 20201204
  Transmission Date: 20210114
  Serious: Yes (Other)
  Sender: FDA-Public Use
  Company Number: US-SUNOVION-2020SUN003585

PATIENT
  Age: 83 Year
  Sex: Male

DRUGS (4)
  1. KYNMOBI [Suspect]
     Active Substance: APOMORPHINE HYDROCHLORIDE
     Dosage: 20 MG (2ND DOSE)
     Route: 060
  2. KYNMOBI [Suspect]
     Active Substance: APOMORPHINE HYDROCHLORIDE
     Dosage: 15 MG
     Route: 060
  3. KYNMOBI [Suspect]
     Active Substance: APOMORPHINE HYDROCHLORIDE
     Dosage: 20 MG (1ST DOSE)
     Route: 060
  4. KYNMOBI [Suspect]
     Active Substance: APOMORPHINE HYDROCHLORIDE
     Dosage: 10 MG
     Route: 060

REACTIONS (9)
  - Mania [Unknown]
  - Ventricular extrasystoles [Unknown]
  - Hallucination [Unknown]
  - Energy increased [Unknown]
  - Feeling abnormal [Unknown]
  - Fall [Unknown]
  - Heart rate decreased [Unknown]
  - General physical health deterioration [Unknown]
  - Aggression [Unknown]
